FAERS Safety Report 10990364 (Version 2)
Quarter: 2015Q2

REPORT INFORMATION
  Report Type: Report from Study
  Country: US (occurrence: US)
  Receive Date: 20150406
  Receipt Date: 20150508
  Transmission Date: 20150821
  Serious: Yes (Hospitalization)
  Sender: FDA-Public Use
  Company Number: US-JNJFOC-20150400405

PATIENT
  Age: 57 Year
  Sex: Female
  Weight: 92.08 kg

DRUGS (6)
  1. USTEKINUMAB [Suspect]
     Active Substance: USTEKINUMAB
     Indication: PSORIASIS
     Route: 042
     Dates: start: 200911
  2. ALEFACEPT [Suspect]
     Active Substance: ALEFACEPT
     Indication: PSORIASIS
     Route: 065
     Dates: start: 200304, end: 200307
  3. ADALIMUMAB [Suspect]
     Active Substance: ADALIMUMAB
     Indication: PSORIASIS
     Route: 065
     Dates: start: 200503
  4. METHOTREXATE [Suspect]
     Active Substance: METHOTREXATE
     Indication: PSORIASIS
     Route: 065
     Dates: start: 200304, end: 200307
  5. INFLIXIMAB, RECOMBINANT [Suspect]
     Active Substance: INFLIXIMAB
     Indication: PSORIASIS
     Route: 042
     Dates: start: 200707, end: 200907
  6. ETANERCEPT [Suspect]
     Active Substance: ETANERCEPT
     Indication: PSORIASIS
     Route: 065
     Dates: start: 200410, end: 200508

REACTIONS (3)
  - Trigeminal neuralgia [Recovered/Resolved]
  - Acute kidney injury [Recovered/Resolved]
  - Acute sinusitis [Recovered/Resolved]

NARRATIVE: CASE EVENT DATE: 20141020
